FAERS Safety Report 10252289 (Version 1)
Quarter: 2014Q2

REPORT INFORMATION
  Report Type: Spontaneous
  Country: US (occurrence: US)
  Receive Date: 20140623
  Receipt Date: 20140623
  Transmission Date: 20141212
  Serious: No
  Sender: FDA-Public Use
  Company Number: US-PFIZER INC-2014166727

PATIENT
  Age: 38 Year
  Sex: Female

DRUGS (1)
  1. SOMAVERT [Suspect]
     Dosage: UNK

REACTIONS (1)
  - Liver function test abnormal [Unknown]
